FAERS Safety Report 10760506 (Version 2)
Quarter: 2015Q1

REPORT INFORMATION
  Report Type: Spontaneous
  Country: US (occurrence: US)
  Receive Date: 20150204
  Receipt Date: 20150205
  Transmission Date: 20150721
  Serious: No
  Sender: FDA-Public Use
  Company Number: 2014SP005884

PATIENT
  Sex: Female

DRUGS (8)
  1. MIBEFRADIL [Suspect]
     Active Substance: MIBEFRADIL
     Indication: PRODUCT USED FOR UNKNOWN INDICATION
  2. FLUORESCEIN [Suspect]
     Active Substance: FLUORESCEIN
     Indication: PRODUCT USED FOR UNKNOWN INDICATION
  3. NIFEDIPINE. [Suspect]
     Active Substance: NIFEDIPINE
     Indication: PRODUCT USED FOR UNKNOWN INDICATION
  4. POSICOR [Suspect]
     Active Substance: MIBEFRADIL DIHYDROCHLORIDE
     Indication: PRODUCT USED FOR UNKNOWN INDICATION
  5. VANCOMYCIN [Suspect]
     Active Substance: VANCOMYCIN
     Indication: PRODUCT USED FOR UNKNOWN INDICATION
  6. ALLOPURINOL. [Suspect]
     Active Substance: ALLOPURINOL
     Indication: PRODUCT USED FOR UNKNOWN INDICATION
  7. FOSAMAX [Suspect]
     Active Substance: ALENDRONATE SODIUM
     Indication: PRODUCT USED FOR UNKNOWN INDICATION
  8. NIACIN. [Suspect]
     Active Substance: NIACIN
     Indication: PRODUCT USED FOR UNKNOWN INDICATION

REACTIONS (1)
  - Drug hypersensitivity [Unknown]
